FAERS Safety Report 6055799-8 (Version None)
Quarter: 2009Q1

REPORT INFORMATION
  Report Type: 
  Country: None (occurrence: None)
  Receive Date: 20090128
  Receipt Date: 20090113
  Transmission Date: 20090719
  Serious: Yes (Hospitalization)
  Sender: FDA-Public Use
  Company Number: FR-PFIZER INC-2009159929

PATIENT

DRUGS (8)
  1. ATORVASTATIN CALCIUM [Suspect]
     Indication: INFARCTION
     Dosage: 80 MG, 1X/DAY
     Route: 048
     Dates: start: 20081020, end: 20081114
  2. CLOPIDOGREL [Concomitant]
  3. ACETYLSALICYLATE LYSINE [Concomitant]
  4. ATENOLOL [Concomitant]
  5. NAFTIDROFURYL OXALATE [Concomitant]
  6. RILMENIDINE DIHYDROGEN PHOSPHATE [Concomitant]
  7. FUROSEMIDE [Concomitant]
  8. ESOMEPRAZOLE MAGNESIUM [Concomitant]

REACTIONS (3)
  - CYTOLYTIC HEPATITIS [None]
  - RENAL FAILURE ACUTE [None]
  - RHABDOMYOLYSIS [None]
